FAERS Safety Report 4879947-8 (Version None)
Quarter: 2006Q1

REPORT INFORMATION
  Report Type: 
  Country: None (occurrence: None)
  Receive Date: 20060111
  Receipt Date: 20060104
  Transmission Date: 20060701
  Serious: Yes (Other)
  Sender: FDA-Public Use
  Company Number: 2006002449

PATIENT
  Age: 8 Year
  Sex: Female
  Weight: 27.2158 kg

DRUGS (1)
  1. NEOSPORIN [Suspect]
     Indication: LACERATION
     Dosage: THICK COATING ONE TIME, TOPICAL
     Route: 061

REACTIONS (4)
  - ANAPHYLACTIC SHOCK [None]
  - CYANOSIS [None]
  - DYSPNOEA [None]
  - RASH GENERALISED [None]
